FAERS Safety Report 15139675 (Version 1)
Quarter: 2018Q3

REPORT INFORMATION
  Report Type: Spontaneous
  Country: DE (occurrence: DE)
  Receive Date: 20180713
  Receipt Date: 20180713
  Transmission Date: 20181010
  Serious: Yes (Hospitalization)
  Sender: FDA-Public Use
  Company Number: DE-TORRENT-00008803

PATIENT
  Age: 71 Year
  Sex: Male
  Weight: 84 kg

DRUGS (18)
  1. OMEPRAZOL [Concomitant]
     Active Substance: OMEPRAZOLE
     Indication: PRODUCT USED FOR UNKNOWN INDICATION
     Dosage: 20 MG, 1?0?0?0
     Route: 048
  2. NALOXON [Suspect]
     Active Substance: NALOXONE HYDROCHLORIDE
     Indication: PRODUCT USED FOR UNKNOWN INDICATION
     Dosage: 50|4 MG, 1?0?1?0
     Route: 048
  3. FUROSEMID [Concomitant]
     Active Substance: FUROSEMIDE
     Indication: PRODUCT USED FOR UNKNOWN INDICATION
     Dosage: 500 MG, 0.5?0.5?0?0
     Route: 048
  4. DOXAZOSIN [Concomitant]
     Active Substance: DOXAZOSIN\DOXAZOSIN MESYLATE
     Indication: PRODUCT USED FOR UNKNOWN INDICATION
     Dosage: 4 MG, 1?1?1?1
     Route: 048
  5. NIFEDIPIN [Suspect]
     Active Substance: NIFEDIPINE
     Indication: PRODUCT USED FOR UNKNOWN INDICATION
     Dosage: 20 MG
  6. ISOPHANE INSULIN [Concomitant]
     Active Substance: INSULIN NOS
     Indication: PRODUCT USED FOR UNKNOWN INDICATION
     Dosage: 3 ML
     Route: 058
  7. METAMIZOL [Concomitant]
     Active Substance: METAMIZOLE SODIUM
     Indication: PRODUCT USED FOR UNKNOWN INDICATION
     Dosage: 500 MG
     Route: 048
  8. LOSARTAN. [Suspect]
     Active Substance: LOSARTAN
     Indication: PRODUCT USED FOR UNKNOWN INDICATION
     Dosage: 50 MG, 1?1?1?0
     Route: 048
  9. INSULIN HUMAN [Concomitant]
     Active Substance: INSULIN HUMAN
     Indication: PRODUCT USED FOR UNKNOWN INDICATION
     Dosage: 3 ML
     Route: 058
  10. EPOETIN ALFA [Concomitant]
     Active Substance: ERYTHROPOIETIN
     Indication: PRODUCT USED FOR UNKNOWN INDICATION
     Dosage: 4000 IE, 1?0?0?0
     Route: 048
  11. SEVELAMER [Concomitant]
     Active Substance: SEVELAMER
     Indication: PRODUCT USED FOR UNKNOWN INDICATION
     Dosage: 800 MG, 2?3?2?0
     Route: 048
  12. METOPROLOL. [Suspect]
     Active Substance: METOPROLOL
     Indication: PRODUCT USED FOR UNKNOWN INDICATION
     Dosage: 47.5 MG, 1?0?0?0
     Route: 048
  13. ACETYLSALICYLSAEURE [Concomitant]
     Active Substance: ASPIRIN
     Indication: PRODUCT USED FOR UNKNOWN INDICATION
     Dosage: 100 MG, 0?0.5?0?0
     Route: 048
  14. LEVODOPA/BENSERAZID [Concomitant]
     Active Substance: BENSERAZIDE\LEVODOPA
     Indication: PRODUCT USED FOR UNKNOWN INDICATION
     Dosage: 0?0?0.5?0
     Route: 048
  15. AMLODIPIN [Concomitant]
     Active Substance: AMLODIPINE BESYLATE
     Indication: PRODUCT USED FOR UNKNOWN INDICATION
     Dosage: 10 MG, 0?0?0?1
     Route: 048
  16. CETIRIZIN [Concomitant]
     Active Substance: CETIRIZINE HYDROCHLORIDE
     Indication: PRODUCT USED FOR UNKNOWN INDICATION
     Dosage: 10 MG, 0?0?0?1
     Route: 048
  17. KALIUMCHLORID [Concomitant]
     Active Substance: POTASSIUM CHLORIDE
     Indication: PRODUCT USED FOR UNKNOWN INDICATION
     Route: 048
  18. TAMSULOSIN [Concomitant]
     Active Substance: TAMSULOSIN
     Indication: PRODUCT USED FOR UNKNOWN INDICATION
     Dosage: 0.4 MG, 1?0?0?0
     Route: 048

REACTIONS (1)
  - Bradycardia [Unknown]

NARRATIVE: CASE EVENT DATE: 20151130
